FAERS Safety Report 4960001-1 (Version None)
Quarter: 2006Q1

REPORT INFORMATION
  Report Type: 
  Country: None (occurrence: None)
  Receive Date: 20060327
  Receipt Date: 20060313
  Transmission Date: 20060701
  Serious: Yes (Death)
  Sender: FDA-Public Use
  Company Number: 2006P1000172

PATIENT
  Age: 86 Year
  Sex: Female

DRUGS (6)
  1. RETEPLASE       (RETEPLASE) [Suspect]
     Indication: ACUTE MYOCARDIAL INFARCTION
     Dosage: 10 IU; X1; IVB
     Route: 040
     Dates: start: 20050630
  2. RETEPLASE       (RETEPLASE) [Suspect]
     Indication: ACUTE MYOCARDIAL INFARCTION
     Dosage: 10 IU; X1; IVB
     Route: 040
     Dates: start: 20050630
  3. ASPIRIN [Suspect]
     Indication: ACUTE MYOCARDIAL INFARCTION
  4. FUROSEMIDE [Concomitant]
  5. METOPROLOL [Concomitant]
  6. GLYCERYL TRINITRATE [Concomitant]

REACTIONS (2)
  - CONFUSIONAL STATE [None]
  - PARALYSIS [None]
